FAERS Safety Report 13255982 (Version 1)
Quarter: 2017Q1

REPORT INFORMATION
  Report Type: Spontaneous
  Country: US (occurrence: US)
  Receive Date: 20170219
  Receipt Date: 20170219
  Transmission Date: 20170428
  Serious: Yes (Life-Threatening, Disabling)
  Sender: FDA-Public Use
  Company Number: None

PATIENT
  Age: 48 Year
  Sex: Male
  Weight: 117 kg

DRUGS (3)
  1. TRUVADA [Concomitant]
     Active Substance: EMTRICITABINE\TENOFOVIR DISOPROXIL FUMARATE
  2. TIVICAY [Suspect]
     Active Substance: DOLUTEGRAVIR SODIUM
     Indication: HIV INFECTION
     Dosage: ?          QUANTITY:1 TABLET(S);?
     Route: 048
     Dates: start: 20160912, end: 20161226
  3. MULTI VITAMIN [Concomitant]
     Active Substance: VITAMINS

REACTIONS (4)
  - Insomnia [None]
  - Nerve injury [None]
  - Herpes zoster [None]
  - Hepatomegaly [None]

NARRATIVE: CASE EVENT DATE: 20161112
